FAERS Safety Report 10068675 (Version 1)
Quarter: 2014Q2

REPORT INFORMATION
  Report Type: Spontaneous
  Country: FR (occurrence: FR)
  Receive Date: 20140409
  Receipt Date: 20140409
  Transmission Date: 20141212
  Serious: Yes (Other)
  Sender: FDA-Public Use
  Company Number: FR-TEVA-473163ISR

PATIENT
  Age: 81 Year
  Sex: Female

DRUGS (1)
  1. SOTALOL [Suspect]
     Indication: ATRIAL TACHYCARDIA
     Dosage: 160 MILLIGRAM DAILY;
     Route: 065

REACTIONS (2)
  - Torsade de pointes [Unknown]
  - Cerebral infarction [Unknown]
